FAERS Safety Report 20407660 (Version 2)
Quarter: 2022Q2

REPORT INFORMATION
  Report Type: Report from Study
  Country: BE (occurrence: BE)
  Receive Date: 20220131
  Receipt Date: 20220426
  Transmission Date: 20220721
  Serious: Yes (Hospitalization)
  Sender: FDA-Public Use
  Company Number: BE-JNJFOC-20220107430

PATIENT
  Age: 73 Year
  Sex: Male

DRUGS (4)
  1. IBRUTINIB [Suspect]
     Active Substance: IBRUTINIB
     Indication: Chronic lymphocytic leukaemia
     Route: 048
     Dates: start: 20161228
  2. IBRUTINIB [Suspect]
     Active Substance: IBRUTINIB
     Dosage: REDUCED DOSE
     Route: 048
     Dates: start: 20170818
  3. IBRUTINIB [Suspect]
     Active Substance: IBRUTINIB
     Dosage: REDUCED DOSE
     Route: 048
     Dates: start: 20190813
  4. IBRUTINIB [Suspect]
     Active Substance: IBRUTINIB
     Dosage: DOSE INCREASED
     Route: 048
     Dates: start: 20211117, end: 20211201

REACTIONS (1)
  - Tumour associated fever [Recovered/Resolved]

NARRATIVE: CASE EVENT DATE: 20211127
